FAERS Safety Report 7040372-5 (Version None)
Quarter: 2010Q4

REPORT INFORMATION
  Report Type: 
  Country: None (occurrence: None)
  Receive Date: 20101008
  Receipt Date: 20101008
  Transmission Date: 20110411
  Serious: Yes (Hospitalization)
  Sender: FDA-Public Use
  Company Number: None

PATIENT
  Sex: Male
  Weight: 60.78 kg

DRUGS (7)
  1. CARBOPLATIN [Suspect]
     Dosage: 1538 MG
     Dates: end: 20100930
  2. ERBITUX [Suspect]
     Dosage: 2152 MG
     Dates: end: 20100930
  3. TAXOL [Suspect]
     Dosage: 697 MG
     Dates: end: 20100930
  4. OXYCONTIN [Concomitant]
  5. MAGNESIUM OXIDE [Concomitant]
  6. OXYCODONE HCL [Concomitant]
  7. SENNEKOT [Concomitant]

REACTIONS (4)
  - ARTHRALGIA [None]
  - DYSPNOEA [None]
  - OXYGEN SATURATION DECREASED [None]
  - PAIN IN EXTREMITY [None]
